FAERS Safety Report 13219946 (Version 3)
Quarter: 2017Q2

REPORT INFORMATION
  Report Type: Report from Study
  Country: US (occurrence: US)
  Receive Date: 20170210
  Receipt Date: 20170525
  Transmission Date: 20170830
  Serious: Yes (Hospitalization, Other)
  Sender: FDA-Public Use
  Company Number: US-AMGEN-USASL2017020230

PATIENT
  Age: 73 Year
  Sex: Female

DRUGS (2)
  1. ENBREL [Suspect]
     Active Substance: ETANERCEPT
     Dosage: 50 MG, QWK
     Route: 065
     Dates: start: 2016
  2. ENBREL [Suspect]
     Active Substance: ETANERCEPT
     Indication: RHEUMATOID ARTHRITIS
     Dosage: 50 MG, QWK
     Route: 058
     Dates: start: 2005

REACTIONS (13)
  - Fall [Unknown]
  - Nodule [Unknown]
  - Accidental exposure to product [Unknown]
  - Wrong technique in product usage process [Unknown]
  - Rheumatoid arthritis [Not Recovered/Not Resolved]
  - Bursitis [Unknown]
  - Amnesia [Unknown]
  - Tibia fracture [Unknown]
  - Knee arthroplasty [Unknown]
  - Joint crepitation [Unknown]
  - Injection site pain [Unknown]
  - Peripheral swelling [Unknown]
  - Underdose [Unknown]

NARRATIVE: CASE EVENT DATE: 2016
